FAERS Safety Report 18817027 (Version 3)
Quarter: 2021Q2

REPORT INFORMATION
  Report Type: Spontaneous
  Country: US (occurrence: US)
  Receive Date: 20210201
  Receipt Date: 20210423
  Transmission Date: 20210717
  Serious: No
  Sender: FDA-Public Use
  Company Number: US-PFIZER INC-2021064745

PATIENT
  Age: 74 Year
  Sex: Female

DRUGS (1)
  1. EUCRISA [Suspect]
     Active Substance: CRISABOROLE
     Dosage: 2X/DAY (APPLY TO AFFECTED AREA ON FACE TWICE DAILY100 GRAM TUBE)

REACTIONS (4)
  - Pain [Unknown]
  - Hyperaesthesia [Unknown]
  - Suspected COVID-19 [Unknown]
  - Application site pruritus [Unknown]

NARRATIVE: CASE EVENT DATE: 2020
